FAERS Safety Report 16152978 (Version 1)
Quarter: 2019Q2

REPORT INFORMATION
  Report Type: Spontaneous
  Country: US (occurrence: US)
  Receive Date: 20190403
  Receipt Date: 20190403
  Transmission Date: 20190711
  Serious: No
  Sender: FDA-Public Use
  Company Number: US-ASTRAZENECA-2019SE38774

PATIENT
  Age: 3803 Week
  Sex: Female
  Weight: 56.2 kg

DRUGS (1)
  1. SYMBICORT [Suspect]
     Active Substance: BUDESONIDE\FORMOTEROL FUMARATE DIHYDRATE
     Indication: PNEUMONIA
     Dosage: TWO PUFFS TWICE DAILY
     Route: 055
     Dates: start: 20190228, end: 20190302

REACTIONS (14)
  - Feeding disorder [Unknown]
  - Product use in unapproved indication [Unknown]
  - Oropharyngeal pain [Unknown]
  - Glossodynia [Unknown]
  - Dyspnoea [Unknown]
  - Off label use [Unknown]
  - Wrong technique in product usage process [Unknown]
  - Intentional product misuse [Recovered/Resolved]
  - Lung disorder [Unknown]
  - Feeling abnormal [Recovering/Resolving]
  - Weight decreased [Unknown]
  - Dysgeusia [Unknown]
  - Feeling abnormal [Unknown]
  - Cough [Unknown]

NARRATIVE: CASE EVENT DATE: 20190226
